FAERS Safety Report 5244606-9 (Version None)
Quarter: 2007Q1

REPORT INFORMATION
  Report Type: 
  Country: None (occurrence: None)
  Receive Date: 20070222
  Receipt Date: 20061013
  Transmission Date: 20070707
  Serious: Yes (Hospitalization, Other)
  Sender: FDA-Public Use
  Company Number: US-SHR-US-2006-030558

PATIENT
  Age: 31 Year
  Sex: Female
  Weight: 64.853 kg

DRUGS (1)
  1. MIRENA [Suspect]
     Dosage: 20 A?G/DAY, CONT
     Route: 015
     Dates: start: 20040304, end: 20060929

REACTIONS (11)
  - ABDOMINAL PAIN LOWER [None]
  - ABORTION MISSED [None]
  - ANTEPARTUM HAEMORRHAGE [None]
  - GASTROINTESTINAL INJURY [None]
  - HAEMOGLOBIN DECREASED [None]
  - HYPERHIDROSIS [None]
  - PALLOR [None]
  - PERITONEAL HAEMORRHAGE [None]
  - PREGNANCY WITH CONTRACEPTIVE DEVICE [None]
  - UTERINE PERFORATION [None]
  - VOMITING [None]
